FAERS Safety Report 5670845-9 (Version None)
Quarter: 2008Q1

REPORT INFORMATION
  Report Type: 
  Country: None (occurrence: None)
  Receive Date: 20080317
  Receipt Date: 20080317
  Transmission Date: 20080703
  Serious: Yes (Other)
  Sender: FDA-Public Use
  Company Number: None

PATIENT

DRUGS (1)
  1. ENBREL [Suspect]
     Dosage: INJECT 50 MG TWICE WEEKLY SQ
     Route: 058

REACTIONS (1)
  - CARDIAC FAILURE CONGESTIVE [None]
